FAERS Safety Report 15789067 (Version 1)
Quarter: 2019Q1

REPORT INFORMATION
  Report Type: Spontaneous
  Country: US (occurrence: US)
  Receive Date: 20190104
  Receipt Date: 20190104
  Transmission Date: 20190417
  Serious: No
  Sender: FDA-Public Use
  Company Number: US-PFIZER INC-2019003554

PATIENT
  Age: 72 Year
  Sex: Female

DRUGS (1)
  1. SOMAVERT [Suspect]
     Active Substance: PEGVISOMANT
     Indication: ACROMEGALY
     Dosage: 15 MG, ALTERNATE DAY [EVERY OTHER DAY]
     Route: 058
     Dates: start: 2006

REACTIONS (4)
  - Vomiting [Unknown]
  - Intentional product misuse [Unknown]
  - Nausea [Unknown]
  - Back pain [Unknown]
